FAERS Safety Report 8430849-X (Version None)
Quarter: 2012Q2

REPORT INFORMATION
  Report Type: 
  Country: None (occurrence: None)
  Receive Date: 20120612
  Receipt Date: 20120604
  Transmission Date: 20120825
  Serious: Yes (Hospitalization)
  Sender: FDA-Public Use
  Company Number: US-US-EMD SERONO, INC.-7138033

PATIENT
  Sex: Female

DRUGS (2)
  1. PAIN MEDICATION [Concomitant]
     Indication: ARTHRITIS
  2. REBIF [Suspect]
     Indication: MULTIPLE SCLEROSIS
     Route: 058
     Dates: start: 20120426

REACTIONS (4)
  - CHEST PAIN [None]
  - APHASIA [None]
  - ARTHRITIS [None]
  - ABASIA [None]
